FAERS Safety Report 7298373-8 (Version None)
Quarter: 2011Q1

REPORT INFORMATION
  Report Type: 
  Country: None (occurrence: None)
  Receive Date: 20110217
  Receipt Date: 20110208
  Transmission Date: 20110831
  Serious: Yes (Other)
  Sender: FDA-Public Use
  Company Number: CA-US-EMD SERONO, INC.-7041387

PATIENT
  Sex: Male

DRUGS (3)
  1. TEMAZEPAM [Concomitant]
  2. REBIF [Suspect]
     Indication: RELAPSING-REMITTING MULTIPLE SCLEROSIS
     Dates: start: 20091016
  3. BACLOFEN [Concomitant]

REACTIONS (1)
  - PHARYNGITIS STREPTOCOCCAL [None]
